FAERS Safety Report 24352317 (Version 1)
Quarter: 2024Q3

REPORT INFORMATION
  Report Type: Spontaneous
  Country: US (occurrence: US)
  Receive Date: 20240923
  Receipt Date: 20240923
  Transmission Date: 20241017
  Serious: No
  Sender: BRISTOL MYERS SQUIBB
  Company Number: US-BRISTOL-MYERS SQUIBB COMPANY-2024-150309

PATIENT
  Age: 86 Year
  Sex: Female
  Weight: 54.88 kg

DRUGS (1)
  1. REVLIMID [Suspect]
     Active Substance: LENALIDOMIDE
     Indication: Myelofibrosis
     Dosage: EVERY OTHER AY FOR 21 DAYS, THEN 7 DAYS OFF
     Route: 048

REACTIONS (2)
  - Neutrophil count decreased [Not Recovered/Not Resolved]
  - Off label use [Unknown]
